FAERS Safety Report 24725543 (Version 2)
Quarter: 2025Q1

REPORT INFORMATION
  Report Type: Spontaneous
  Country: US (occurrence: US)
  Receive Date: 20241212
  Receipt Date: 20250206
  Transmission Date: 20250408
  Serious: Yes (Hospitalization, Other)
  Sender: SANOFI AVENTIS
  Company Number: US-SA-2024SA366151

PATIENT
  Sex: Female
  Weight: 133.27 kg

DRUGS (17)
  1. DUPIXENT [Suspect]
     Active Substance: DUPILUMAB
     Indication: Idiopathic urticaria
     Dosage: 300 MG, QOW
     Route: 058
  2. DUPIXENT [Suspect]
     Active Substance: DUPILUMAB
     Indication: Asthma
  3. ASMANEX HFA [Concomitant]
     Active Substance: MOMETASONE FUROATE
  4. ZINC [Concomitant]
     Active Substance: ZINC
  5. MELOXICAM [Concomitant]
     Active Substance: MELOXICAM
  6. TRETINOIN [Concomitant]
     Active Substance: TRETINOIN
  7. PROAIR DIGIHALER [Concomitant]
     Active Substance: ALBUTEROL SULFATE
  8. MODAFINIL [Concomitant]
     Active Substance: MODAFINIL
  9. CETIRIZINE HCL [Concomitant]
     Active Substance: CETIRIZINE HYDROCHLORIDE
  10. VITAMINS [Concomitant]
     Active Substance: VITAMINS
  11. CICLOPIROX [Concomitant]
     Active Substance: CICLOPIROX
  12. ONDANSETRON HYDROCHLORIDE [Concomitant]
     Active Substance: ONDANSETRON HYDROCHLORIDE
  13. VITAMIN C [Concomitant]
     Active Substance: ASCORBIC ACID
  14. DAPSONE [Concomitant]
     Active Substance: DAPSONE
  15. LINZESS [Concomitant]
     Active Substance: LINACLOTIDE
  16. PHENTERMINE HYDROCHLORIDE [Concomitant]
     Active Substance: PHENTERMINE HYDROCHLORIDE
  17. BETAMETHASONE DIPROPIONATE AUGMENTED [Concomitant]
     Active Substance: BETAMETHASONE DIPROPIONATE

REACTIONS (3)
  - Atypical pneumonia [Unknown]
  - Dyspnoea [Unknown]
  - Product use in unapproved indication [Unknown]
